FAERS Safety Report 8575468-X (Version None)
Quarter: 2012Q3

REPORT INFORMATION
  Report Type: 
  Country: None (occurrence: None)
  Receive Date: 20120807
  Receipt Date: 20120731
  Transmission Date: 20120928
  Serious: Yes (Hospitalization)
  Sender: FDA-Public Use
  Company Number: PHHY2012JP066021

PATIENT
  Age: 77 Year
  Sex: Female
  Weight: 36 kg

DRUGS (2)
  1. ROZEREM [Concomitant]
     Indication: INSOMNIA
     Dosage: 8 MG, UNK
     Route: 048
     Dates: start: 20120713, end: 20120718
  2. TASIGNA [Suspect]
     Indication: CHRONIC MYELOID LEUKAEMIA
     Dosage: 300 MG, DAILY
     Route: 048
     Dates: start: 20120620, end: 20120719

REACTIONS (2)
  - GASTRIC PERFORATION [None]
  - HELICOBACTER TEST POSITIVE [None]
